FAERS Safety Report 5386802-6 (Version None)
Quarter: 2007Q3

REPORT INFORMATION
  Report Type: 
  Country: None (occurrence: None)
  Receive Date: 20070713
  Receipt Date: 20070702
  Transmission Date: 20080115
  Serious: Yes (Other)
  Sender: FDA-Public Use
  Company Number: US-PFIZER INC-2006141055

PATIENT
  Sex: Male
  Weight: 102.1 kg

DRUGS (7)
  1. CELEBREX [Suspect]
     Indication: ARTHRITIS
     Route: 048
     Dates: start: 20030101, end: 20031212
  2. CELEBREX [Suspect]
     Route: 048
     Dates: start: 20031212, end: 20040101
  3. BEXTRA [Suspect]
     Route: 048
  4. VIOXX [Suspect]
     Route: 048
     Dates: start: 20030430, end: 20041004
  5. ZITHROMAX [Concomitant]
  6. SPIRONOLACTONE [Concomitant]
  7. PLAVIX [Concomitant]

REACTIONS (2)
  - CARDIOVASCULAR DISORDER [None]
  - MYOCARDIAL INFARCTION [None]
